FAERS Safety Report 7570028-1 (Version None)
Quarter: 2011Q2

REPORT INFORMATION
  Report Type: 
  Country: None (occurrence: None)
  Receive Date: 20110620
  Receipt Date: 20110425
  Transmission Date: 20111010
  Serious: Yes (Death, Other)
  Sender: FDA-Public Use
  Company Number: IPC201104-000785

PATIENT

DRUGS (2)
  1. METOCLOPRAMIDE HYDROCHLORIDE [Suspect]
     Dosage: ORAL
     Route: 048
     Dates: start: 20080201, end: 20090501
  2. REGLAN [Suspect]
     Dosage: ORAL
     Route: 048
     Dates: start: 20080201, end: 20090501

REACTIONS (2)
  - EXTRAPYRAMIDAL DISORDER [None]
  - TARDIVE DYSKINESIA [None]
